FAERS Safety Report 16894055 (Version 1)
Quarter: 2019Q4

REPORT INFORMATION
  Report Type: Spontaneous
  Country: BR (occurrence: BR)
  Receive Date: 20191008
  Receipt Date: 20191008
  Transmission Date: 20200122
  Serious: Yes (Other)
  Sender: FDA-Public Use
  Company Number: BR-SA-2019SA272370

PATIENT
  Sex: Female
  Weight: 1.5 kg

DRUGS (1)
  1. CLEXANE [Suspect]
     Active Substance: ENOXAPARIN SODIUM
     Dosage: UNK UNK, UNK
     Route: 064

REACTIONS (5)
  - Milk allergy [Unknown]
  - Foetal exposure during pregnancy [Unknown]
  - Haematochezia [Unknown]
  - Poor feeding infant [Unknown]
  - Premature baby [Unknown]
